FAERS Safety Report 26131772 (Version 1)
Quarter: 2025Q4

REPORT INFORMATION
  Report Type: Spontaneous
  Country: US (occurrence: None)
  Receive Date: 20251208
  Receipt Date: 20251208
  Transmission Date: 20260117
  Serious: Yes (Hospitalization)
  Sender: FDA-CTU
  Company Number: None

PATIENT
  Sex: Female

DRUGS (4)
  1. NUCALA [Suspect]
     Active Substance: MEPOLIZUMAB
     Indication: Asthma
     Dosage: OTHER QUANTITY : 1 PEN UNDER THE SKIN ;?OTHER FREQUENCY : EVERY FOUR WEEKS;
     Route: 058
     Dates: start: 20250719
  2. ALBUTEROL AER HFA [Concomitant]
  3. AZSTARYS [Concomitant]
     Active Substance: DEXMETHYLPHENIDATE HYDROCHLORIDE\SERDEXMETHYLPHENIDATE CHLORIDE
  4. MULTIVITAMIN ADULTS [Concomitant]

REACTIONS (3)
  - Pneumonia [None]
  - Quality of life decreased [None]
  - Condition aggravated [None]
